APPROVED DRUG PRODUCT: MONODOX
Active Ingredient: DOXYCYCLINE
Strength: EQ 100MG BASE
Dosage Form/Route: CAPSULE;ORAL
Application: N050641 | Product #001 | TE Code: AB
Applicant: CHARTWELL RX SCIENCES LLC
Approved: Dec 29, 1989 | RLD: Yes | RS: No | Type: RX